FAERS Safety Report 4445940-2 (Version None)
Quarter: 2004Q3

REPORT INFORMATION
  Report Type: 
  Country: None (occurrence: None)
  Receive Date: 20040903
  Receipt Date: 20040830
  Transmission Date: 20050211
  Serious: Yes (Life-Threatening, Hospitalization)
  Sender: FDA-Public Use
  Company Number: 19651

PATIENT
  Age: 74 Year
  Sex: Male
  Weight: 68.9467 kg

DRUGS (7)
  1. NIASPAN [Suspect]
     Indication: HYPERLIPIDAEMIA
     Dosage: 500 MG QD PO
     Route: 048
     Dates: start: 20040408, end: 20040410
  2. ZOCOR [Suspect]
     Indication: HYPERLIPIDAEMIA
     Dosage: 80 MG QD PO
     Route: 048
     Dates: start: 20040408, end: 20040410
  3. LISINOPRIL [Concomitant]
  4. DILTIAZEM CD [Concomitant]
  5. PLAVIX [Concomitant]
  6. ACIPHEX [Concomitant]
  7. NEURONTIN [Concomitant]

REACTIONS (5)
  - DRUG INTERACTION [None]
  - HEPATITIS [None]
  - HYPERHIDROSIS [None]
  - RASH PRURITIC [None]
  - RHABDOMYOLYSIS [None]
